FAERS Safety Report 16987151 (Version 1)
Quarter: 2019Q4

REPORT INFORMATION
  Report Type: Spontaneous
  Country: US (occurrence: US)
  Receive Date: 20190919
  Receipt Date: 20190919
  Transmission Date: 20200122
  Serious: No
  Sender: FDA-Public Use
  Company Number: None

PATIENT
  Sex: Female

DRUGS (1)
  1. LUPANETA PACK [Suspect]
     Active Substance: LEUPROLIDE ACETATE\NORETHINDRONE ACETATE
     Indication: ENDOMETRIOSIS
     Dosage: ?          OTHER FREQUENCY:EVERY 3 MONTHS;?
     Route: 030
     Dates: start: 20190625

REACTIONS (3)
  - Hot flush [None]
  - Muscle spasms [None]
  - Mood swings [None]
